FAERS Safety Report 6230249-7 (Version None)
Quarter: 2009Q2

REPORT INFORMATION
  Report Type: 
  Country: None (occurrence: None)
  Receive Date: 20090615
  Receipt Date: 20090611
  Transmission Date: 20091009
  Serious: Yes (Other)
  Sender: FDA-Public Use
  Company Number: JP-ABBOTT-09P-087-0579336-00

PATIENT
  Sex: Female
  Weight: 15 kg

DRUGS (8)
  1. CEFZON FINE GRANULE [Suspect]
     Indication: DRUG USE FOR UNKNOWN INDICATION
     Route: 048
     Dates: start: 20090427, end: 20090430
  2. CALONAL [Suspect]
     Indication: DRUG USE FOR UNKNOWN INDICATION
     Route: 048
  3. LAC B [Suspect]
     Indication: DRUG USE FOR UNKNOWN INDICATION
     Route: 048
  4. MUCODYNE-DS [Concomitant]
     Indication: DRUG USE FOR UNKNOWN INDICATION
  5. ASVERIN [Concomitant]
     Indication: DRUG USE FOR UNKNOWN INDICATION
  6. LACTOSE [Concomitant]
     Indication: DRUG USE FOR UNKNOWN INDICATION
  7. BESTRON [Concomitant]
     Indication: DRUG USE FOR UNKNOWN INDICATION
  8. TOWK [Concomitant]
     Indication: DRUG USE FOR UNKNOWN INDICATION

REACTIONS (1)
  - POLLAKIURIA [None]
